FAERS Safety Report 8870763 (Version 2)
Quarter: 2012Q4

REPORT INFORMATION
  Report Type: 
  Country: US (occurrence: US)
  Receive Date: 20121029
  Receipt Date: 20121221
  Transmission Date: 20130627
  Serious: Yes (Hospitalization)
  Sender: FDA-Public Use
  Company Number: US-BIOGENIDEC-2012BI047139

PATIENT
  Age: 58 Year
  Sex: Female

DRUGS (9)
  1. AVONEX [Suspect]
     Indication: MULTIPLE SCLEROSIS
     Route: 030
     Dates: start: 20121002
  2. VICODIN [Concomitant]
  3. COMBIVENT [Concomitant]
  4. SEROQUEL [Concomitant]
  5. HYDROCHLOROTHIAZIDE [Concomitant]
  6. PROZAC [Concomitant]
  7. FAMOTIDINE [Concomitant]
  8. LAMICTAL [Concomitant]
  9. IRON [Concomitant]

REACTIONS (2)
  - Multiple sclerosis relapse [Unknown]
  - Hypoaesthesia [Unknown]
